FAERS Safety Report 5586110-4 (Version None)
Quarter: 2007Q4

REPORT INFORMATION
  Report Type: 
  Country: None (occurrence: None)
  Receive Date: 20071205
  Receipt Date: 20061031
  Transmission Date: 20080405
  Serious: Yes (Other)
  Sender: FDA-Public Use
  Company Number: HQWYE460102OCT06

PATIENT
  Age: 65 Year
  Sex: Female
  Weight: 79.9 kg

DRUGS (18)
  1. EFFEXOR XR [Suspect]
     Indication: DEPRESSION
     Dosage: 300 MG 1 X PER 1 DAY, ORAL
     Route: 048
     Dates: start: 20021201, end: 20060930
  2. ALPRAZOLAM [Concomitant]
  3. LEVODOPA-CARBIDOPA (CARBIDOPA/LEVODOPA) [Concomitant]
  4. DILTIAZEM [Concomitant]
  5. FLONASE [Concomitant]
  6. ADVAIR DISKUS 100/50 [Concomitant]
  7. MULTIVITAMINS W/MINERALS (MINERALS NOS/VITAMINS NOS) [Concomitant]
  8. FUROSEMIDE [Concomitant]
  9. GABAPENTIN [Concomitant]
  10. GEMFIBROZIL [Concomitant]
  11. LEVOXYL [Concomitant]
  12. MUCINEX [Concomitant]
  13. NEXIUM [Concomitant]
  14. POTASSIUM CHLORIDE [Concomitant]
  15. SEROQUEL [Concomitant]
  16. SINGULAIR [Concomitant]
  17. ZETIA [Concomitant]
  18. ZYRTEC [Concomitant]

REACTIONS (1)
  - ELECTROCARDIOGRAM QT PROLONGED [None]
